FAERS Safety Report 10671498 (Version 2)
Quarter: 2015Q1

REPORT INFORMATION
  Report Type: Spontaneous
  Country: US (occurrence: US)
  Receive Date: 20141223
  Receipt Date: 20150130
  Transmission Date: 20150720
  Serious: Yes (Hospitalization, Other)
  Sender: FDA-Public Use
  Company Number: US-BAYER-2014-184440

PATIENT
  Age: 28 Year
  Sex: Female
  Weight: 104.31 kg

DRUGS (4)
  1. ADDERALL [Concomitant]
     Active Substance: AMPHETAMINE ASPARTATE\AMPHETAMINE SULFATE\DEXTROAMPHETAMINE SACCHARATE\DEXTROAMPHETAMINE SULFATE
     Indication: ATTENTION DEFICIT/HYPERACTIVITY DISORDER
     Dosage: UNK
     Dates: start: 2005
  2. EFFEXOR XR [Concomitant]
     Active Substance: VENLAFAXINE HYDROCHLORIDE
     Indication: DEPRESSION
     Dosage: 75 MG TO 150 MG DAILY
     Route: 048
     Dates: start: 2005
  3. MIRENA [Suspect]
     Active Substance: LEVONORGESTREL
     Indication: MENORRHAGIA
     Dosage: 20 MCG/24HR, CONT
     Route: 015
     Dates: start: 20100504, end: 20110622
  4. MIRENA [Suspect]
     Active Substance: LEVONORGESTREL
     Indication: CONTRACEPTION
     Dosage: 20 MCG/24HR, CONT
     Route: 015
     Dates: start: 20080306

REACTIONS (13)
  - Anxiety [None]
  - Device issue [None]
  - Device expulsion [None]
  - Embedded device [None]
  - Fear [None]
  - Depression [None]
  - Injury [None]
  - Internal injury [None]
  - Medical device discomfort [None]
  - Depressed mood [None]
  - Pain [None]
  - Emotional distress [None]
  - Genital haemorrhage [None]

NARRATIVE: CASE EVENT DATE: 201106
